FAERS Safety Report 12661150 (Version 3)
Quarter: 2017Q1

REPORT INFORMATION
  Report Type: Spontaneous
  Country: US (occurrence: US)
  Receive Date: 20160817
  Receipt Date: 20170216
  Transmission Date: 20170428
  Serious: No
  Sender: FDA-Public Use
  Company Number: US-RELYPSA-RLY2016000657

PATIENT
  Sex: Male

DRUGS (10)
  1. FOLBIC [Concomitant]
     Active Substance: CYANOCOBALAMIN\FOLIC ACID\PYRIDOXINE
  2. FOSRENOL [Concomitant]
     Active Substance: LANTHANUM CARBONATE
  3. CRESTOR [Concomitant]
     Active Substance: ROSUVASTATIN CALCIUM
  4. MICARDIS [Concomitant]
     Active Substance: TELMISARTAN
  5. LASIX [Concomitant]
     Active Substance: FUROSEMIDE
  6. DOXYCYCLINE HYCLATE. [Concomitant]
     Active Substance: DOXYCYCLINE HYCLATE
  7. CALCITRIOL. [Concomitant]
     Active Substance: CALCITRIOL
  8. TOPROL XL [Concomitant]
     Active Substance: METOPROLOL SUCCINATE
  9. GLYBURIDE. [Concomitant]
     Active Substance: GLYBURIDE
  10. VELTASSA [Suspect]
     Active Substance: PATIROMER
     Indication: HYPERKALAEMIA
     Dosage: 8.4 G, QD
     Dates: start: 20160423

REACTIONS (1)
  - Headache [Unknown]
